FAERS Safety Report 17302582 (Version 11)
Quarter: 2020Q4

REPORT INFORMATION
  Report Type: Spontaneous
  Country: PT (occurrence: PT)
  Receive Date: 20200122
  Receipt Date: 20201218
  Transmission Date: 20210113
  Serious: Yes (Hospitalization, Other)
  Sender: FDA-Public Use
  Company Number: PT-MYLANLABS-2019M1098069

PATIENT
  Age: 69 Year
  Sex: Male

DRUGS (9)
  1. METFORMIN W/SITAGLIPTIN [Suspect]
     Active Substance: METFORMIN\SITAGLIPTIN PHOSPHATE
     Indication: PRODUCT USED FOR UNKNOWN INDICATION
     Dosage: AT A LOWER DOSE
     Route: 048
  2. METFORMIN W/SITAGLIPTIN [Concomitant]
     Active Substance: METFORMIN\SITAGLIPTIN PHOSPHATE
     Indication: TYPE 2 DIABETES MELLITUS
     Dosage: UNK
     Route: 048
  3. LERCANIDIPINE [Suspect]
     Active Substance: LERCANIDIPINE
     Indication: PRODUCT USED FOR UNKNOWN INDICATION
     Dosage: UNK
     Route: 048
  4. LINAGLIPTINA [Concomitant]
     Active Substance: LINAGLIPTIN
     Indication: TYPE 2 DIABETES MELLITUS
     Dosage: UNK
     Route: 065
  5. ACETYLSALICYLIC ACID [Suspect]
     Active Substance: ASPIRIN
     Indication: PRODUCT USED FOR UNKNOWN INDICATION
     Dosage: UNK
     Route: 048
  6. ACETYLSALICYLIC ACID [Concomitant]
     Active Substance: ASPIRIN
     Indication: PRODUCT USED FOR UNKNOWN INDICATION
     Dosage: UNK
     Route: 048
  7. OLMESARTAN MEDOXOMIL. [Suspect]
     Active Substance: OLMESARTAN MEDOXOMIL
     Indication: ESSENTIAL HYPERTENSION
     Dosage: UNK
     Route: 048
  8. LERCANIDIPINA                      /01366401/ [Concomitant]
     Active Substance: LERCANIDIPINE
     Indication: ESSENTIAL HYPERTENSION
     Dosage: UNK
     Route: 048
  9. OLMESARTAN MEDOXOMIL. [Suspect]
     Active Substance: OLMESARTAN MEDOXOMIL
     Indication: HYPERTENSION
     Dosage: AT A LOWER DOSE
     Route: 048

REACTIONS (5)
  - Gastrointestinal disorder [Recovered/Resolved]
  - Diarrhoea [Recovered/Resolved]
  - Blood urea increased [Recovered/Resolved]
  - Blood creatine increased [Recovered/Resolved]
  - Sprue-like enteropathy [Recovered/Resolved]
